FAERS Safety Report 16813894 (Version 6)
Quarter: 2020Q2

REPORT INFORMATION
  Report Type: Spontaneous
  Country: GB (occurrence: GB)
  Receive Date: 20190917
  Receipt Date: 20200501
  Transmission Date: 20200713
  Serious: Yes (Death, Other)
  Sender: FDA-Public Use
  Company Number: RU-SA-2019SA256715

PATIENT
  Age: 17 Year
  Sex: Male

DRUGS (16)
  1. CAMPATH [Suspect]
     Active Substance: ALEMTUZUMAB
     Indication: COMBINED IMMUNODEFICIENCY
  2. ETANERCEPT [Concomitant]
     Active Substance: ETANERCEPT
     Indication: STEM CELL TRANSPLANT
  3. METHOTREXATE. [Suspect]
     Active Substance: METHOTREXATE
     Indication: CHOLANGITIS SCLEROSING
  4. ALKERAN [Suspect]
     Active Substance: MELPHALAN
     Indication: COMBINED IMMUNODEFICIENCY
  5. CYCLOSPORIN A [Concomitant]
     Active Substance: CYCLOSPORINE
     Indication: PROPHYLAXIS AGAINST GRAFT VERSUS HOST DISEASE
     Dosage: AIMING FOR TROUGH LEVELS 150-250 M MOL/L
  6. CAMPATH [Suspect]
     Active Substance: ALEMTUZUMAB
     Indication: CHOLANGITIS SCLEROSING
     Dosage: UNK, UNK
     Route: 041
  7. CAMPATH [Suspect]
     Active Substance: ALEMTUZUMAB
     Indication: BONE MARROW CONDITIONING REGIMEN
     Dosage: UNK
  8. FLUDARABINE PHOSPHATE. [Suspect]
     Active Substance: FLUDARABINE PHOSPHATE
     Indication: CHOLANGITIS SCLEROSING
     Dosage: UNK
     Route: 065
  9. ALKERAN [Suspect]
     Active Substance: MELPHALAN
     Indication: CHOLANGITIS SCLEROSING
  10. THALIDOMIDE [Concomitant]
     Active Substance: THALIDOMIDE
     Indication: STEM CELL TRANSPLANT
  11. TOCILIZUMAB. [Concomitant]
     Active Substance: TOCILIZUMAB
     Indication: STEM CELL TRANSPLANT
  12. FLUDARABINE PHOSPHATE. [Suspect]
     Active Substance: FLUDARABINE PHOSPHATE
     Indication: COMBINED IMMUNODEFICIENCY
  13. FLUDARABINE PHOSPHATE. [Suspect]
     Active Substance: FLUDARABINE PHOSPHATE
     Indication: BONE MARROW CONDITIONING REGIMEN
  14. METHOTREXATE. [Suspect]
     Active Substance: METHOTREXATE
     Indication: COMBINED IMMUNODEFICIENCY
  15. ALKERAN [Suspect]
     Active Substance: MELPHALAN
     Indication: BONE MARROW CONDITIONING REGIMEN
     Dosage: UNK
     Route: 065
  16. ANAKINRA [Concomitant]
     Active Substance: ANAKINRA
     Indication: STEM CELL TRANSPLANT

REACTIONS (3)
  - Haemolysis [Fatal]
  - Off label use [Unknown]
  - Encephalitis mumps [Fatal]
